FAERS Safety Report 11045317 (Version 1)
Quarter: 2015Q2

REPORT INFORMATION
  Report Type: Spontaneous
  Country: IT (occurrence: IT)
  Receive Date: 20150417
  Receipt Date: 20150417
  Transmission Date: 20150821
  Serious: Yes (Other)
  Sender: FDA-Public Use
  Company Number: IT-BAYER-2015-118176

PATIENT
  Age: 77 Year
  Sex: Male

DRUGS (2)
  1. CIPROFLOXACIN. [Suspect]
     Active Substance: CIPROFLOXACIN
     Indication: PSEUDOMONAS INFECTION
     Dosage: DAILY DOSE 1 G
     Route: 048
     Dates: start: 20150324, end: 20150327
  2. ATORVASTATIN [Interacting]
     Active Substance: ATORVASTATIN
     Dosage: DAILY DOSE 20 MG
     Route: 048

REACTIONS (2)
  - Transaminases increased [Recovered/Resolved]
  - Drug interaction [Recovered/Resolved]

NARRATIVE: CASE EVENT DATE: 20150325
